FAERS Safety Report 8041511 (Version 5)
Quarter: 2013Q2

REPORT INFORMATION
  Report Type: Spontaneous
  Country: US (occurrence: US)
  Receive Date: 20110718
  Receipt Date: 20130605
  Transmission Date: 20140414
  Serious: Yes (Other)
  Sender: FDA-Public Use
  Company Number: US-ELI_LILLY_AND_COMPANY-US201107002721

PATIENT
  Age: 75 Year
  Sex: Female
  Weight: 89.8 kg

DRUGS (7)
  1. FORTEO [Suspect]
     Indication: OSTEOPOROSIS
     Dosage: 20 UG, QD
     Route: 058
     Dates: start: 20110524
  2. FORTEO [Suspect]
     Dosage: 20 UG, QD
     Route: 058
  3. CRESTOR [Concomitant]
  4. ACTOS [Concomitant]
  5. NEXIUM [Concomitant]
  6. MIRAPEX [Concomitant]
  7. VITAMIN D3 [Concomitant]
     Dosage: UNK

REACTIONS (5)
  - Pelvic fracture [Unknown]
  - Back pain [Unknown]
  - Blood parathyroid hormone decreased [Unknown]
  - Fall [Unknown]
  - Upper limb fracture [Unknown]
